FAERS Safety Report 7563261-6 (Version None)
Quarter: 2011Q2

REPORT INFORMATION
  Report Type: 
  Country: None (occurrence: None)
  Receive Date: 20110622
  Receipt Date: 20110616
  Transmission Date: 20111010
  Serious: Yes (Death)
  Sender: FDA-Public Use
  Company Number: TN-SANOFI-AVENTIS-2011SA038695

PATIENT
  Age: 56 Year
  Sex: Female

DRUGS (9)
  1. CORVASAL [Concomitant]
     Route: 048
  2. FAMODINE [Concomitant]
     Route: 048
  3. PLAVIX [Suspect]
     Route: 048
     Dates: start: 20100510, end: 20110101
  4. INSULATARD [Concomitant]
     Route: 058
  5. PLAVIX [Suspect]
     Route: 048
     Dates: start: 20100510, end: 20110101
  6. ASPIRIN [Concomitant]
     Route: 048
  7. RAMIPRIL [Concomitant]
     Route: 048
  8. HYPOTEN [Concomitant]
     Route: 048
  9. AMARYL [Concomitant]
     Route: 048

REACTIONS (1)
  - DEATH [None]
